FAERS Safety Report 6013884-0 (Version None)
Quarter: 2008Q4

REPORT INFORMATION
  Report Type: 
  Country: None (occurrence: None)
  Receive Date: 20081216
  Receipt Date: 20071129
  Transmission Date: 20090506
  Serious: Yes (Other)
  Sender: FDA-Public Use
  Company Number: US-WYE-H01565007

PATIENT

DRUGS (1)
  1. EFFEXOR XR [Suspect]
     Dosage: 37.5 M (FREQUENCY UNSPECIFIED)

REACTIONS (2)
  - ANAPHYLACTIC REACTION [None]
  - RASH [None]
